FAERS Safety Report 7935309-8 (Version None)
Quarter: 2011Q4

REPORT INFORMATION
  Report Type: 
  Country: None (occurrence: None)
  Receive Date: 20111122
  Receipt Date: 20111107
  Transmission Date: 20120403
  Serious: Yes (Hospitalization)
  Sender: FDA-Public Use
  Company Number: DE-WATSON-2011-19691

PATIENT
  Age: 19 Year
  Sex: Female

DRUGS (1)
  1. FLUOROURACIL [Suspect]
     Indication: NASOPHARYNGEAL CANCER
     Dosage: 1000 MG/M2, DAILY X 5 DAYS
     Dates: start: 20090601

REACTIONS (6)
  - VITAMIN B1 DEFICIENCY [None]
  - ELECTROLYTE IMBALANCE [None]
  - MULTI-ORGAN FAILURE [None]
  - OEDEMA PERIPHERAL [None]
  - PARAESTHESIA [None]
  - MUCOSAL INFLAMMATION [None]
